FAERS Safety Report 23989167 (Version 1)
Quarter: 2024Q2

REPORT INFORMATION
  Report Type: Spontaneous
  Country: CN (occurrence: CN)
  Receive Date: 20240619
  Receipt Date: 20240619
  Transmission Date: 20240715
  Serious: Yes (Other)
  Sender: FDA-Public Use
  Company Number: CN-SUN PHARMACEUTICAL INDUSTRIES LTD-2024R1-451135

PATIENT
  Age: 64 Year
  Sex: Male

DRUGS (8)
  1. FOLIC ACID [Suspect]
     Active Substance: FOLIC ACID
     Indication: Adenocarcinoma of colon
     Dosage: UNK 8 CYCLES
     Route: 065
     Dates: start: 20220812, end: 20221217
  2. FOLIC ACID [Suspect]
     Active Substance: FOLIC ACID
     Indication: Oesophageal squamous cell carcinoma
  3. OXALIPLATIN [Suspect]
     Active Substance: OXALIPLATIN
     Indication: Oesophageal squamous cell carcinoma
     Dosage: UNK 8 CYCLES
     Route: 065
     Dates: start: 20220812, end: 20221217
  4. OXALIPLATIN [Suspect]
     Active Substance: OXALIPLATIN
     Indication: Adenocarcinoma of colon
  5. FLUOROURACIL [Suspect]
     Active Substance: FLUOROURACIL
     Indication: Oesophageal squamous cell carcinoma
     Dosage: UNK 8 CYCLES
     Route: 065
     Dates: start: 20220812, end: 20221217
  6. FLUOROURACIL [Suspect]
     Active Substance: FLUOROURACIL
     Indication: Adenocarcinoma of colon
  7. CETUXIMAB [Suspect]
     Active Substance: CETUXIMAB
     Indication: Oesophageal squamous cell carcinoma
     Dosage: UNK 8 CYCLES
     Route: 065
     Dates: start: 20220812, end: 20221217
  8. CETUXIMAB [Suspect]
     Active Substance: CETUXIMAB
     Indication: Adenocarcinoma of colon

REACTIONS (3)
  - Myelosuppression [Unknown]
  - Palmar-plantar erythrodysaesthesia syndrome [Unknown]
  - Rash [Unknown]
